FAERS Safety Report 22654155 (Version 1)
Quarter: 2023Q2

REPORT INFORMATION
  Report Type: Spontaneous
  Country: US (occurrence: US)
  Receive Date: 20230629
  Receipt Date: 20230629
  Transmission Date: 20230722
  Serious: Yes (Hospitalization)
  Sender: FDA-Public Use
  Company Number: US-MYLANLABS-2023M1068317

PATIENT
  Age: 30 Year
  Sex: Female

DRUGS (3)
  1. CALCITONIN SALMON [Suspect]
     Active Substance: CALCITONIN SALMON
     Indication: Hypercalcaemia
     Dosage: UNK
     Route: 065
  2. PACLITAXEL [Suspect]
     Active Substance: PACLITAXEL
     Indication: Mucinous breast carcinoma
     Dosage: UNK
     Route: 065
  3. PAMIDRONATE [Suspect]
     Active Substance: PAMIDRONATE DISODIUM
     Indication: Hypercalcaemia
     Dosage: 90 MILLIGRAM, 3X (GIVEN A TOTAL OF 3 TIMES DURING ADMISSION)
     Route: 042

REACTIONS (2)
  - Drug ineffective [Unknown]
  - Maternal exposure during pregnancy [Recovered/Resolved]
